FAERS Safety Report 8490516-3 (Version None)
Quarter: 2012Q3

REPORT INFORMATION
  Report Type: 
  Country: None (occurrence: None)
  Receive Date: 20120705
  Receipt Date: 20120621
  Transmission Date: 20120928
  Serious: No
  Sender: FDA-Public Use
  Company Number: US-ASTRAZENECA-2012SE41912

PATIENT
  Age: 71 Year
  Sex: Male
  Weight: 66.7 kg

DRUGS (5)
  1. VITAMIN TAB [Concomitant]
  2. CALCIUM [Concomitant]
  3. GENERIC ANTIDEPRESSANT DRUG [Concomitant]
  4. CRESTOR [Suspect]
     Indication: BLOOD CHOLESTEROL INCREASED
     Route: 048
     Dates: start: 20120619
  5. SIMVASTATIN [Concomitant]

REACTIONS (2)
  - MALAISE [None]
  - HEADACHE [None]
